FAERS Safety Report 18567992 (Version 1)
Quarter: 2020Q4

REPORT INFORMATION
  Report Type: Spontaneous
  Country: ES (occurrence: ES)
  Receive Date: 20201202
  Receipt Date: 20201202
  Transmission Date: 20210114
  Serious: Yes (Hospitalization, Other)
  Sender: FDA-Public Use
  Company Number: ES-LUPIN PHARMACEUTICALS INC.-2020-09755

PATIENT
  Age: 53 Year
  Sex: Female

DRUGS (14)
  1. TACROLIMUS. [Concomitant]
     Active Substance: TACROLIMUS
     Indication: IMMUNOSUPPRESSANT DRUG THERAPY
     Dosage: UNK
     Route: 065
  2. RIFAMPIN. [Suspect]
     Active Substance: RIFAMPIN
     Indication: TUBERCULOSIS OF CENTRAL NERVOUS SYSTEM
     Dosage: UNK
     Route: 065
     Dates: start: 2015
  3. LINEZOLID. [Suspect]
     Active Substance: LINEZOLID
     Indication: PARADOXICAL DRUG REACTION
     Dosage: 600 MILLIGRAM, QD
     Route: 065
     Dates: start: 201510
  4. DEXAMETHASONE. [Suspect]
     Active Substance: DEXAMETHASONE
     Dosage: UNK (HIGH DOSES OF DEXAMETHASONE WERE RESTARTED)
     Route: 065
     Dates: start: 201509
  5. PYRAZINAMIDE. [Suspect]
     Active Substance: PYRAZINAMIDE
     Indication: TUBERCULOSIS OF CENTRAL NERVOUS SYSTEM
     Dosage: UNK
     Route: 065
     Dates: start: 2015
  6. DEXAMETHASONE. [Suspect]
     Active Substance: DEXAMETHASONE
     Indication: ADJUVANT THERAPY
     Dosage: UNK (TAPERING OF THE DEXAMETHASONE DOSE WAS PERFORMED AND DRUG STOPPED)
     Route: 065
     Dates: start: 2015, end: 2015
  7. DEXAMETHASONE. [Suspect]
     Active Substance: DEXAMETHASONE
     Dosage: 24 MILLIGRAM, QD
     Route: 065
     Dates: start: 201510
  8. MOXIFLOXACIN HCL [Suspect]
     Active Substance: MOXIFLOXACIN
     Indication: TUBERCULOSIS OF CENTRAL NERVOUS SYSTEM
     Dosage: UNK
     Route: 065
     Dates: start: 2015
  9. DEXAMETHASONE. [Suspect]
     Active Substance: DEXAMETHASONE
     Indication: PARADOXICAL DRUG REACTION
     Dosage: 16 MILLIGRAM, QD
     Route: 065
     Dates: start: 2015
  10. ISONIAZID. [Suspect]
     Active Substance: ISONIAZID
     Indication: TUBERCULOSIS OF CENTRAL NERVOUS SYSTEM
     Dosage: UNK
     Route: 065
     Dates: start: 2015
  11. CYCLOSERINE. [Suspect]
     Active Substance: CYCLOSERINE
     Indication: TUBERCULOSIS OF CENTRAL NERVOUS SYSTEM
     Dosage: UNK
     Route: 065
     Dates: start: 2015, end: 201509
  12. MYCOPHENOLATE [Concomitant]
     Active Substance: MYCOPHENOLIC ACID
     Indication: IMMUNOSUPPRESSANT DRUG THERAPY
     Dosage: UNK
     Route: 065
  13. RIFAMPIN. [Suspect]
     Active Substance: RIFAMPIN
     Indication: PARADOXICAL DRUG REACTION
     Dosage: 900 MILLIGRAM, QD
     Route: 065
     Dates: start: 201510
  14. ETHAMBUTOL [Suspect]
     Active Substance: ETHAMBUTOL HYDROCHLORIDE
     Indication: TUBERCULOSIS OF CENTRAL NERVOUS SYSTEM
     Dosage: UNK
     Route: 065
     Dates: start: 2015

REACTIONS (6)
  - Tuberculoma of central nervous system [Recovered/Resolved]
  - Basal ganglia infarction [Not Recovered/Not Resolved]
  - Generalised tonic-clonic seizure [Unknown]
  - Paradoxical drug reaction [Recovered/Resolved]
  - Cerebellar infarction [Not Recovered/Not Resolved]
  - Drug ineffective [Unknown]

NARRATIVE: CASE EVENT DATE: 201509
